FAERS Safety Report 9853687 (Version 2)
Quarter: 2014Q1

REPORT INFORMATION
  Report Type: Report from Study
  Country: CA (occurrence: CA)
  Receive Date: 20140129
  Receipt Date: 20140129
  Transmission Date: 20141002
  Serious: Yes (Other)
  Sender: FDA-Public Use
  Company Number: CA-ALEXION-A201304509

PATIENT
  Age: 64 Year
  Sex: Female
  Weight: 58.5 kg

DRUGS (18)
  1. SOLIRIS [Suspect]
     Indication: PAROXYSMAL NOCTURNAL HAEMOGLOBINURIA
     Dosage: 600 MG, QW
     Route: 042
     Dates: start: 20110217, end: 20110309
  2. SOLIRIS [Suspect]
     Dosage: 900 MG, Q2W
     Route: 042
     Dates: start: 20110316
  3. PREDNISONE [Concomitant]
     Indication: PAROXYSMAL NOCTURNAL HAEMOGLOBINURIA
     Dosage: 5 MG, QD
     Route: 048
     Dates: start: 200407
  4. ACTONEL [Concomitant]
     Indication: PROPHYLAXIS
     Dosage: 1 TAB, QW
     Route: 048
     Dates: start: 20080207
  5. METFORMIN [Concomitant]
     Indication: DIABETES MELLITUS
     Dosage: 425 MG, QD
     Route: 048
     Dates: start: 20100801
  6. NOVOLIN 70/30 INNOLET [Concomitant]
     Indication: DIABETES MELLITUS
     Dosage: 14 IU, QD
     Route: 058
     Dates: start: 20100801
  7. PANTOLOC [Concomitant]
     Indication: PROPHYLAXIS
     Dosage: 40 MG, QD
     Route: 048
     Dates: start: 20080201
  8. FOLIC ACID [Concomitant]
     Indication: PAROXYSMAL NOCTURNAL HAEMOGLOBINURIA
     Dosage: 5 MG, QD
     Route: 048
     Dates: start: 20050419
  9. FERROUS SULFATE [Concomitant]
     Indication: SUPPLEMENTATION THERAPY
     Dosage: 300 MG, QD
     Route: 048
     Dates: start: 20050419
  10. CALCITE D [Concomitant]
     Indication: SUPPLEMENTATION THERAPY
     Dosage: 500 MG, QD
     Route: 048
     Dates: start: 20080207
  11. VITAMIN D [Concomitant]
     Indication: SUPPLEMENTATION THERAPY
     Dosage: 400 MG, QD
     Route: 048
     Dates: start: 20080207
  12. VOLTAREN [Concomitant]
     Indication: TENDONITIS
     Dosage: 1 COAT, PRN
     Route: 061
     Dates: start: 20110801
  13. TYLENOL EXTRA-STRENGTH [Concomitant]
     Indication: PAIN
     Dosage: 500 MG, PRN
     Route: 048
     Dates: start: 20130329
  14. AMOXICILLIN [Concomitant]
     Indication: PROPHYLAXIS
     Dosage: 500 MG, QD
     Dates: start: 201306
  15. AMOXICILLIN [Concomitant]
     Indication: MENINGITIS BACTERIAL
  16. SULFATRIM [Concomitant]
     Indication: PROPHYLAXIS
     Dosage: 0513 UNK, UNK
     Route: 048
     Dates: start: 20130905
  17. SULFATRIM [Concomitant]
     Indication: PNEUMONIA
  18. NEORAL [Concomitant]
     Indication: IMMUNOSUPPRESSANT DRUG THERAPY
     Dosage: 150 MG, BID
     Route: 048
     Dates: start: 20130825

REACTIONS (1)
  - Haemoglobin decreased [Recovered/Resolved]
